FAERS Safety Report 5154302-4 (Version None)
Quarter: 2006Q4

REPORT INFORMATION
  Report Type: 
  Country: None (occurrence: None)
  Receive Date: 20061120
  Receipt Date: 20060405
  Transmission Date: 20070319
  Serious: Yes (Death, Hospitalization)
  Sender: FDA-Public Use
  Company Number: US-SANOFI-SYNTHELABO-A03200602153

PATIENT
  Sex: Male

DRUGS (27)
  1. ASPIRIN [Suspect]
     Route: 048
  2. PLAVIX [Suspect]
     Indication: MYOCARDIAL INFARCTION
     Route: 048
  3. TOPROL-XL [Concomitant]
     Route: 048
  4. VICODIN [Concomitant]
     Dosage: UNK
     Route: 048
  5. LOPRESSOR [Concomitant]
     Route: 048
  6. LASIX [Concomitant]
     Route: 048
  7. KETOCONAZOLE [Concomitant]
     Route: 048
  8. DIOVAN [Concomitant]
     Route: 048
  9. CLONIDINE [Concomitant]
     Route: 048
  10. CATAPRES-TTS-1 [Concomitant]
     Route: 061
  11. AMITRIPTYLINE HCL [Concomitant]
     Route: 048
  12. FLOVENT [Concomitant]
     Dosage: UNK
     Route: 055
  13. TRANXENE [Concomitant]
     Route: 048
  14. PREVACID [Concomitant]
     Route: 048
  15. METOCLOPRAMIDE [Concomitant]
     Route: 048
  16. MAG OX [Concomitant]
     Route: 048
  17. LORCET-HD [Concomitant]
     Dosage: 10/650 MG EVERY 6 HOURS
     Route: 048
  18. ISOSORBIDE MONONITRATE [Concomitant]
     Route: 048
  19. HYDRALAZINE HCL [Concomitant]
     Route: 048
  20. HUMULIN N [Concomitant]
     Dosage: 35 UNITS AM AND 15 UNITS PM
     Route: 058
  21. DILANTIN [Concomitant]
     Route: 048
  22. DEMADEX [Concomitant]
     Route: 048
  23. COREG [Concomitant]
     Route: 048
  24. COMBIVENT [Concomitant]
     Dosage: UNK
     Route: 055
  25. AMBIEN [Concomitant]
     Route: 048
  26. ALBUTEROL [Concomitant]
     Dosage: 2 PUFFS AS NEEDED
     Route: 055
  27. ADVAIR DISKUS 100/50 [Concomitant]
     Dosage: 1 PUFF TWICE DAILY
     Route: 055

REACTIONS (11)
  - ASTHENIA [None]
  - CANDIDIASIS [None]
  - DEATH [None]
  - DEHYDRATION [None]
  - FATIGUE [None]
  - HYPERGLYCAEMIA [None]
  - HYPEROSMOLAR STATE [None]
  - HYPONATRAEMIA [None]
  - RENAL FAILURE ACUTE [None]
  - RESPIRATORY TRACT INFECTION [None]
  - SLEEP DISORDER [None]
